FAERS Safety Report 16202573 (Version 1)
Quarter: 2019Q2

REPORT INFORMATION
  Report Type: Spontaneous
  Country: US (occurrence: US)
  Receive Date: 20190313
  Receipt Date: 20190313
  Transmission Date: 20190711
  Serious: Yes (Hospitalization)
  Sender: FDA-Public Use
  Company Number: None

PATIENT
  Age: 52 Year
  Sex: Female

DRUGS (4)
  1. SIMVASTATIN. [Concomitant]
     Active Substance: SIMVASTATIN
  2. IBRANCE [Suspect]
     Active Substance: PALBOCICLIB
     Dates: start: 20170630
  3. LEVOTHYROXINE. [Concomitant]
     Active Substance: LEVOTHYROXINE
  4. FASIODEX [Concomitant]

REACTIONS (1)
  - Rib fracture [None]

NARRATIVE: CASE EVENT DATE: 20190213
